FAERS Safety Report 15820125 (Version 4)
Quarter: 2019Q1

REPORT INFORMATION
  Report Type: Report from Study
  Country: HU (occurrence: HU)
  Receive Date: 20190114
  Receipt Date: 20190329
  Transmission Date: 20190417
  Serious: Yes (Hospitalization, Other)
  Sender: FDA-Public Use
  Company Number: PHHY2018HU165732

PATIENT
  Age: 25 Year
  Sex: Female
  Weight: 63 kg

DRUGS (7)
  1. TASIGNA [Suspect]
     Active Substance: NILOTINIB
     Dosage: 400 MG, QD
     Route: 048
  2. TASIGNA [Suspect]
     Active Substance: NILOTINIB
     Indication: CHRONIC MYELOID LEUKAEMIA
     Dosage: (2X150 MG), BID
     Route: 048
     Dates: start: 20180522
  3. INTRON A [Concomitant]
     Active Substance: INTERFERON ALFA-2B
     Dosage: 3 MIU, QD
     Route: 058
     Dates: start: 20181126
  4. TASIGNA [Suspect]
     Active Substance: NILOTINIB
     Dosage: 150 MG, BID
     Route: 048
     Dates: end: 20181120
  5. INTRON A [Concomitant]
     Active Substance: INTERFERON ALFA-2B
     Indication: PRODUCT USED FOR UNKNOWN INDICATION
     Dosage: 1.5 MIU, QD
     Route: 058
     Dates: start: 20181122
  6. INTERFERON [Concomitant]
     Active Substance: INTERFERON
     Indication: CHRONIC MYELOID LEUKAEMIA
     Dosage: 3 MIU, UNK
     Route: 065
     Dates: start: 20190103
  7. ELEVIT [Concomitant]
     Active Substance: FOLIC ACID\IRON\MINERALS\VITAMINS
     Indication: VITAMIN SUPPLEMENTATION
     Dosage: 1 DF, QD
     Route: 048

REACTIONS (16)
  - Maternal exposure during pregnancy [Not Recovered/Not Resolved]
  - Bone pain [Recovering/Resolving]
  - Vomiting [Unknown]
  - Diarrhoea [Unknown]
  - Body temperature increased [Unknown]
  - Hypoaesthesia [Unknown]
  - Platelet count increased [Unknown]
  - Blood pressure diastolic decreased [Unknown]
  - Type 2 diabetes mellitus [Unknown]
  - Anaemia [Unknown]
  - Nausea [Unknown]
  - Mean platelet volume decreased [Unknown]
  - Abortion [Recovered/Resolved]
  - Headache [Unknown]
  - Oropharyngeal pain [Unknown]
  - White blood cell count increased [Unknown]

NARRATIVE: CASE EVENT DATE: 2018
